FAERS Safety Report 8208569-6 (Version None)
Quarter: 2012Q1

REPORT INFORMATION
  Report Type: 
  Country: None (occurrence: None)
  Receive Date: 20120314
  Receipt Date: 20120306
  Transmission Date: 20120608
  Serious: Yes (Hospitalization)
  Sender: FDA-Public Use
  Company Number: US-GLAXOSMITHKLINE-A0969534A

PATIENT
  Age: 81 Year
  Sex: Female

DRUGS (17)
  1. POTASSIUM CHLORIDE [Concomitant]
  2. LASIX [Concomitant]
  3. PLAVIX [Concomitant]
  4. ALKERAN [Suspect]
     Indication: PRODUCT USED FOR UNKNOWN INDICATION
     Dosage: 2MG UNKNOWN
     Route: 065
     Dates: start: 20111001
  5. ULTRAM [Concomitant]
  6. LISINOPRIL [Concomitant]
  7. CYMBALTA [Concomitant]
  8. NEURONTIN [Concomitant]
  9. PRAVASTATIN [Concomitant]
  10. NITROGLYCERIN [Concomitant]
  11. PAIN MEDICATION [Suspect]
  12. COREG [Concomitant]
  13. PRILOSEC [Concomitant]
  14. PREDNISONE TAB [Concomitant]
     Indication: PRODUCT USED FOR UNKNOWN INDICATION
     Dosage: 20MG PER DAY
     Route: 065
     Dates: start: 20111001
  15. ZOMETA [Concomitant]
     Indication: PRODUCT USED FOR UNKNOWN INDICATION
     Dosage: 3.5MG UNKNOWN
     Route: 065
     Dates: start: 20111006
  16. ADVAIR DISKUS 100/50 [Concomitant]
  17. ASPIRIN [Concomitant]

REACTIONS (5)
  - SHOCK [None]
  - PRESYNCOPE [None]
  - SYNCOPE [None]
  - VOMITING [None]
  - BLOOD PRESSURE DECREASED [None]
